FAERS Safety Report 9003268 (Version 1)
Quarter: 2013Q1

REPORT INFORMATION
  Report Type: Spontaneous
  Country: US (occurrence: US)
  Receive Date: 20130108
  Receipt Date: 20130108
  Transmission Date: 20140127
  Serious: No
  Sender: FDA-Public Use
  Company Number: US-ASTRAZENECA-2013SE00494

PATIENT
  Age: 78 Year
  Sex: Female
  Weight: 77.1 kg

DRUGS (9)
  1. SYMBICORT PMDI [Suspect]
     Indication: CHRONIC OBSTRUCTIVE PULMONARY DISEASE
     Dosage: 160 MCGS, BID
     Route: 055
     Dates: start: 2010, end: 201212
  2. ONGLYZA [Suspect]
     Route: 048
  3. METFORMIN [Concomitant]
     Indication: DIABETES MELLITUS
     Route: 048
  4. DERAMIPEXOLE DIHYDROCHLORIDE [Concomitant]
     Indication: RESTLESS LEGS SYNDROME
     Route: 048
  5. ENALAPRIL [Concomitant]
     Route: 048
  6. BYSTOLIC [Concomitant]
     Indication: BLOOD PRESSURE
     Route: 048
  7. SIMVASTATIN [Concomitant]
     Indication: BLOOD CHOLESTEROL
  8. FUROSEMIDE [Concomitant]
     Indication: OEDEMA
     Route: 048
  9. LEXAPRO [Concomitant]
     Route: 048

REACTIONS (3)
  - Dyspnoea [Unknown]
  - Hypertension [Unknown]
  - Drug dose omission [Unknown]
